FAERS Safety Report 6373526-1 (Version None)
Quarter: 2009Q3

REPORT INFORMATION
  Report Type: 
  Country: None (occurrence: None)
  Receive Date: 20090924
  Receipt Date: 20090216
  Transmission Date: 20100115
  Serious: Yes (Hospitalization)
  Sender: FDA-Public Use
  Company Number: US-ASTRAZENECA-2009UW04375

PATIENT

DRUGS (1)
  1. SEROQUEL [Suspect]
     Route: 048

REACTIONS (1)
  - MANIA [None]
